FAERS Safety Report 22025574 (Version 1)
Quarter: 2023Q1

REPORT INFORMATION
  Report Type: Spontaneous
  Country: US (occurrence: None)
  Receive Date: 20230223
  Receipt Date: 20230223
  Transmission Date: 20230418
  Serious: No
  Sender: FDA-Public Use
  Company Number: US-ROCHE-3115929

PATIENT
  Age: 33 Year
  Sex: Female

DRUGS (2)
  1. XOLAIR [Suspect]
     Active Substance: OMALIZUMAB
     Indication: Chronic spontaneous urticaria
     Route: 065
     Dates: start: 2019
  2. LEVOTHYROXINE [Concomitant]
     Active Substance: LEVOTHYROXINE
     Indication: Hypothyroidism

REACTIONS (10)
  - Abdominal discomfort [Unknown]
  - Migraine [Unknown]
  - Visual impairment [Unknown]
  - Pain [Unknown]
  - Hypoaesthesia [Unknown]
  - Muscle twitching [Unknown]
  - Anxiety [Unknown]
  - Tremor [Unknown]
  - Hypothyroidism [Unknown]
  - Abnormal loss of weight [Unknown]
